FAERS Safety Report 13232334 (Version 2)
Quarter: 2017Q1

REPORT INFORMATION
  Report Type: Spontaneous
  Country: US (occurrence: US)
  Receive Date: 20170214
  Receipt Date: 20170222
  Transmission Date: 20170428
  Serious: No
  Sender: FDA-Public Use
  Company Number: US-GILEAD-2017-0257143

PATIENT
  Age: 40 Year
  Sex: Male

DRUGS (2)
  1. TRUVADA [Suspect]
     Active Substance: EMTRICITABINE\TENOFOVIR DISOPROXIL FUMARATE
     Indication: PRODUCT USED FOR UNKNOWN INDICATION
     Route: 065
  2. HYDROQUINONE. [Concomitant]
     Active Substance: HYDROQUINONE

REACTIONS (7)
  - Application site burn [Unknown]
  - Facial paralysis [Unknown]
  - Oral mucosal discolouration [Not Recovered/Not Resolved]
  - Weight loss poor [Not Recovered/Not Resolved]
  - Lip discolouration [Not Recovered/Not Resolved]
  - Local swelling [Not Recovered/Not Resolved]
  - Swelling face [Not Recovered/Not Resolved]
